FAERS Safety Report 6097246-6 (Version None)
Quarter: 2009Q1

REPORT INFORMATION
  Report Type: 
  Country: None (occurrence: None)
  Receive Date: 20090227
  Receipt Date: 20090217
  Transmission Date: 20090719
  Serious: Yes (Hospitalization)
  Sender: FDA-Public Use
  Company Number: B0561383A

PATIENT
  Age: 1 Day
  Sex: Female

DRUGS (9)
  1. LAMICTAL [Suspect]
     Indication: DRUG USE FOR UNKNOWN INDICATION
  2. ZYPREXA [Suspect]
     Indication: DRUG USE FOR UNKNOWN INDICATION
  3. PROPAVAN [Suspect]
     Indication: DRUG USE FOR UNKNOWN INDICATION
  4. NOZINAN [Suspect]
     Indication: DRUG USE FOR UNKNOWN INDICATION
  5. ACETAMINOPHEN W/ CODEINE [Suspect]
     Indication: DRUG USE FOR UNKNOWN INDICATION
  6. DIKLOFENAC [Suspect]
     Indication: DRUG USE FOR UNKNOWN INDICATION
  7. TOLVON [Suspect]
     Indication: DRUG USE FOR UNKNOWN INDICATION
  8. DIAZEPAM [Suspect]
     Indication: DRUG USE FOR UNKNOWN INDICATION
  9. ZOPIKLON [Suspect]
     Indication: DRUG USE FOR UNKNOWN INDICATION

REACTIONS (9)
  - CONGENITAL HAND MALFORMATION [None]
  - CONGENITAL MUSCULOSKELETAL ANOMALY [None]
  - DEXTROCARDIA [None]
  - DRUG EXPOSURE DURING PREGNANCY [None]
  - DYSMORPHISM [None]
  - MOEBIUS II SYNDROME [None]
  - POLAND'S SYNDROME [None]
  - SYNDACTYLY [None]
  - TALIPES [None]
